FAERS Safety Report 17365760 (Version 1)
Quarter: 2020Q1

REPORT INFORMATION
  Report Type: Spontaneous
  Country: US (occurrence: US)
  Receive Date: 20200204
  Receipt Date: 20200204
  Transmission Date: 20200409
  Serious: No
  Sender: FDA-Public Use
  Company Number: US-UNITED THERAPEUTICS-UNT-2020-001540

PATIENT
  Sex: Female
  Weight: 87.98 kg

DRUGS (2)
  1. WARFARIN [Concomitant]
     Active Substance: WARFARIN
     Indication: PRODUCT USED FOR UNKNOWN INDICATION
     Route: 065
  2. REMODULIN [Suspect]
     Active Substance: TREPROSTINIL
     Indication: PULMONARY ARTERIAL HYPERTENSION
     Dosage: 0.077 ?G/KG, CONTINUING
     Route: 058
     Dates: start: 20151104

REACTIONS (3)
  - Poor quality device used [Unknown]
  - Device issue [Unknown]
  - Malaise [Recovering/Resolving]
